FAERS Safety Report 17615262 (Version 1)
Quarter: 2020Q2

REPORT INFORMATION
  Report Type: Report from Study
  Country: None (occurrence: ES)
  Receive Date: 20200402
  Receipt Date: 20200402
  Transmission Date: 20200713
  Serious: Yes (Other)
  Sender: FDA-Public Use
  Company Number: ES-ABBVIE-20K-144-3346645-00

PATIENT
  Age: 71 Year
  Sex: Female
  Weight: 61 kg

DRUGS (1)
  1. DUODOPA [Suspect]
     Active Substance: CARBIDOPA\LEVODOPA
     Indication: PARKINSON^S DISEASE
     Route: 050
     Dates: start: 20191004

REACTIONS (3)
  - Intestinal metastasis [Recovering/Resolving]
  - Metastases to liver [Recovering/Resolving]
  - Metastases to lung [Recovering/Resolving]

NARRATIVE: CASE EVENT DATE: 20200224
